FAERS Safety Report 7198346-X (Version None)
Quarter: 2010Q4

REPORT INFORMATION
  Report Type: 
  Country: None (occurrence: None)
  Receive Date: 20101223
  Receipt Date: 20101223
  Transmission Date: 20110411
  Serious: Yes (Life-Threatening, Hospitalization, Disabling)
  Sender: FDA-Public Use
  Company Number: None

PATIENT
  Age: 33 Year
  Sex: Female
  Weight: 63.5036 kg

DRUGS (1)
  1. METRONIDAZOLE [Suspect]
     Indication: CLOSTRIDIAL INFECTION
     Dosage: BY MOUTH 500MG  3X DAY
     Route: 048
     Dates: start: 20101108, end: 20101113

REACTIONS (9)
  - DRUG HYPERSENSITIVITY [None]
  - DYSARTHRIA [None]
  - DYSPHAGIA [None]
  - GASTROINTESTINAL TUBE INSERTION [None]
  - HYPOAESTHESIA ORAL [None]
  - NEURITIS [None]
  - NEUROPATHY PERIPHERAL [None]
  - PHARYNGEAL HYPOAESTHESIA [None]
  - WEIGHT DECREASED [None]
